FAERS Safety Report 4297306-6 (Version None)
Quarter: 2004Q1

REPORT INFORMATION
  Report Type: 
  Country: None (occurrence: None)
  Receive Date: 20040213
  Receipt Date: 20040206
  Transmission Date: 20041129
  Serious: Yes (Death, Hospitalization)
  Sender: FDA-Public Use
  Company Number: 2004195783FR

PATIENT
  Age: 40 Year
  Sex: Female

DRUGS (7)
  1. ALDACTONE [Suspect]
     Dosage: 75 MG, QD, ORAL
     Route: 048
     Dates: start: 20030110, end: 20030227
  2. SPECIALFOLDINE(FOLIC ACID) [Suspect]
     Dosage: 2 DF, QD, ORAL
     Route: 048
     Dates: start: 20030110, end: 20030227
  3. PREDNISOLONE [Suspect]
     Dosage: 40 MG, QD, ORAL
     Route: 048
     Dates: start: 20030110, end: 20030226
  4. OMEPRAZOLE [Suspect]
     Dosage: 20 MG, QD, ORAL
     Route: 048
     Dates: start: 20030110, end: 20030227
  5. AOTAL(ACAMPROSATE) [Suspect]
     Dosage: 4 DF, QD, ORAL
     Route: 048
     Dates: start: 20030110, end: 20030227
  6. ACETAMINOPHEN [Suspect]
     Indication: BACK PAIN
     Dosage: 3 G, QD, ORAL
     Route: 048
     Dates: start: 20030219, end: 20030225
  7. DIFFU K [Concomitant]

REACTIONS (2)
  - STEVENS-JOHNSON SYNDROME [None]
  - TOXIC EPIDERMAL NECROLYSIS [None]
